FAERS Safety Report 4428085-7 (Version None)
Quarter: 2004Q3

REPORT INFORMATION
  Report Type: 
  Country: None (occurrence: None)
  Receive Date: 20040816
  Receipt Date: 20040806
  Transmission Date: 20050211
  Serious: Yes (Other)
  Sender: FDA-Public Use
  Company Number: 2004227221US

PATIENT
  Age: 40 Year
  Sex: Female
  Weight: 81.6 kg

DRUGS (1)
  1. SOLU-MEDROL [Suspect]
     Indication: MULTIPLE SCLEROSIS
     Dosage: 3000MG, IV
     Route: 042

REACTIONS (1)
  - WEIGHT INCREASED [None]
